FAERS Safety Report 18035535 (Version 1)
Quarter: 2020Q3

REPORT INFORMATION
  Report Type: Spontaneous
  Country: US (occurrence: US)
  Receive Date: 20200716
  Receipt Date: 20200716
  Transmission Date: 20201103
  Serious: No
  Sender: FDA-Public Use
  Company Number: None

PATIENT
  Age: 56 Year
  Sex: Male

DRUGS (1)
  1. LOSARTAN (LOSARTAN POTASSIUM 100MG TAB, UD) [Suspect]
     Active Substance: LOSARTAN POTASSIUM
     Route: 048
     Dates: start: 20190815, end: 20190911

REACTIONS (2)
  - Therapy cessation [None]
  - Back pain [None]

NARRATIVE: CASE EVENT DATE: 20190911
